FAERS Safety Report 8885302 (Version 3)
Quarter: 2012Q4

REPORT INFORMATION
  Report Type: 
  Country: US (occurrence: US)
  Receive Date: 20121101
  Receipt Date: 20121218
  Transmission Date: 20130627
  Serious: No
  Sender: FDA-Public Use
  Company Number: US-ASTRAZENECA-2011SE49103

PATIENT
  Age: 67 Year
  Sex: Female
  Weight: 65.8 kg

DRUGS (9)
  1. NEXIUM [Suspect]
     Indication: GASTROOESOPHAGEAL REFLUX DISEASE
     Route: 048
  2. CRESTOR [Suspect]
     Route: 048
  3. CRESTOR [Suspect]
     Route: 048
     Dates: start: 2012, end: 2012
  4. CRESTOR [Suspect]
     Route: 048
     Dates: start: 2012
  5. LIPTOR [Concomitant]
  6. METFORMIN [Concomitant]
     Indication: GLUCOSE TOLERANCE IMPAIRED
  7. LOTENSIN [Concomitant]
     Indication: BLOOD PRESSURE ABNORMAL
  8. GLIPIZIDE [Concomitant]
     Indication: GLUCOSE TOLERANCE IMPAIRED
  9. IRON [Concomitant]
     Indication: IRON DEFICIENCY ANAEMIA

REACTIONS (7)
  - Gastrooesophageal reflux disease [Unknown]
  - Anaemia [Unknown]
  - Diabetes mellitus [Unknown]
  - Body height decreased [Unknown]
  - Drug effect increased [Unknown]
  - Hypertension [Unknown]
  - Muscular weakness [Recovered/Resolved]
